FAERS Safety Report 8602884-X (Version None)
Quarter: 2012Q3

REPORT INFORMATION
  Report Type: 
  Country: None (occurrence: None)
  Receive Date: 20120817
  Receipt Date: 20120808
  Transmission Date: 20120928
  Serious: Yes (Congenital Anomaly)
  Sender: FDA-Public Use
  Company Number: US-GLAXOSMITHKLINE-A0989902A

PATIENT
  Sex: Male

DRUGS (3)
  1. PAXIL [Suspect]
     Indication: BIPOLAR DISORDER
     Dosage: 20MG UNKNOWN
     Route: 064
  2. TEGRETOL [Concomitant]
     Indication: BIPOLAR DISORDER
     Route: 064
     Dates: end: 20020301
  3. XANAX [Concomitant]
     Indication: BIPOLAR DISORDER
     Route: 064
     Dates: end: 20020301

REACTIONS (2)
  - CARDIAC SEPTAL DEFECT [None]
  - FOETAL EXPOSURE DURING PREGNANCY [None]
